FAERS Safety Report 7375613-8 (Version None)
Quarter: 2011Q1

REPORT INFORMATION
  Report Type: 
  Country: None (occurrence: None)
  Receive Date: 20110325
  Receipt Date: 20110310
  Transmission Date: 20110831
  Serious: Yes (Hospitalization, Other)
  Sender: FDA-Public Use
  Company Number: US-BAYER-201021953NA

PATIENT
  Sex: Female
  Weight: 75.737 kg

DRUGS (2)
  1. YAZ [Suspect]
     Indication: PRODUCT USED FOR UNKNOWN INDICATION
     Route: 048
     Dates: start: 20060601, end: 20070501
  2. XANAX [Concomitant]
     Dosage: UNK UNK, PRN
     Route: 048

REACTIONS (1)
  - PULMONARY EMBOLISM [None]
